FAERS Safety Report 5010600-6 (Version None)
Quarter: 2006Q2

REPORT INFORMATION
  Report Type: 
  Country: None (occurrence: None)
  Receive Date: 20060524
  Receipt Date: 20060524
  Transmission Date: 20061013
  Serious: No
  Sender: FDA-Public Use
  Company Number: None

PATIENT
  Age: 56 Year
  Sex: Female
  Weight: 48.0813 kg

DRUGS (1)
  1. CARAFATE [Suspect]
     Indication: ULCER
     Dosage: ONE TAB TWICE DAILY   TWICE DAILY  PO
     Route: 048
     Dates: start: 20060301, end: 20060523

REACTIONS (3)
  - DIZZINESS [None]
  - HUNGER [None]
  - TREMOR [None]
